FAERS Safety Report 24074516 (Version 2)
Quarter: 2024Q3

REPORT INFORMATION
  Report Type: Spontaneous
  Country: CA (occurrence: CA)
  Receive Date: 20240710
  Receipt Date: 20240826
  Transmission Date: 20241017
  Serious: Yes (Other)
  Sender: BAYER
  Company Number: CA-BAYER-2024A097726

PATIENT
  Sex: Male
  Weight: 176 kg

DRUGS (2)
  1. GADOBUTROL [Suspect]
     Active Substance: GADOBUTROL
     Dosage: 15 ML, ONCE
     Route: 042
     Dates: start: 20240704, end: 20240704
  2. GADOBUTROL [Suspect]
     Active Substance: GADOBUTROL
     Dosage: 2 ML, ONCE
     Route: 042
     Dates: start: 20240704, end: 20240704

REACTIONS (4)
  - Urticaria [None]
  - Throat irritation [None]
  - Loss of consciousness [None]
  - Oxygen saturation decreased [None]
